FAERS Safety Report 8138483-6 (Version None)
Quarter: 2012Q1

REPORT INFORMATION
  Report Type: 
  Country: None (occurrence: None)
  Receive Date: 20120215
  Receipt Date: 20120214
  Transmission Date: 20120608
  Serious: Yes (Hospitalization)
  Sender: FDA-Public Use
  Company Number: IT-PFIZER INC-2012034002

PATIENT
  Age: 67 Year
  Sex: Male

DRUGS (2)
  1. SUTENT [Suspect]
     Indication: RENAL CELL CARCINOMA
     Dosage: 50 MG, 1X/DAY
     Route: 048
     Dates: start: 20111214, end: 20111230
  2. ADALAT [Concomitant]
     Dosage: 30 MG, 1X/DAY
     Route: 048

REACTIONS (1)
  - HYPERTENSIVE CRISIS [None]
